FAERS Safety Report 16369848 (Version 2)
Quarter: 2019Q2

REPORT INFORMATION
  Report Type: Spontaneous
  Country: FR (occurrence: FR)
  Receive Date: 20190530
  Receipt Date: 20190606
  Transmission Date: 20190711
  Serious: Yes (Life-Threatening, Hospitalization, Other)
  Sender: FDA-Public Use
  Company Number: FR-TEVA-2019-FR-1055534

PATIENT
  Age: 39 Year
  Sex: Female

DRUGS (5)
  1. DIAZEPAM. [Suspect]
     Active Substance: DIAZEPAM
     Route: 048
  2. PROPRANOLOL [Suspect]
     Active Substance: PROPRANOLOL HYDROCHLORIDE
     Route: 048
  3. SODIUM DIVALPROEX [Suspect]
     Active Substance: DIVALPROEX SODIUM
     Route: 048
  4. QUETIAPINE. [Interacting]
     Active Substance: QUETIAPINE
     Route: 048
  5. ALPRAZOLAM. [Suspect]
     Active Substance: ALPRAZOLAM
     Route: 048

REACTIONS (8)
  - Hypotension [Unknown]
  - Toxicity to various agents [Unknown]
  - Condition aggravated [Recovering/Resolving]
  - Drug interaction [Unknown]
  - Electrocardiogram QRS complex shortened [Unknown]
  - Coma [Recovering/Resolving]
  - Intentional overdose [Unknown]
  - Pneumonia aspiration [Unknown]
